FAERS Safety Report 12464371 (Version 1)
Quarter: 2016Q2

REPORT INFORMATION
  Report Type: Spontaneous
  Country: US (occurrence: US)
  Receive Date: 20160614
  Receipt Date: 20160614
  Transmission Date: 20160815
  Serious: No
  Sender: FDA-Public Use
  Company Number: US-BAYER-2016-115548

PATIENT
  Age: 50 Year
  Sex: Female
  Weight: 81.63 kg

DRUGS (2)
  1. MIRALAX [Suspect]
     Active Substance: POLYETHYLENE GLYCOL 3350
     Indication: BOWEL MOVEMENT IRREGULARITY
     Dosage: ONLY TOOK A PARTIAL DOSE (FILLED THE PRODUCT TO THE BOTTOM SCREW LINE IN THE WHITE AREA OF THE CAP)
     Route: 048
     Dates: start: 20160610
  2. MIRALAX [Suspect]
     Active Substance: POLYETHYLENE GLYCOL 3350
     Indication: BOWEL MOVEMENT IRREGULARITY
     Dosage: ONLY TOOK A PARTIAL DOSE (FILLED THE PRODUCT TO THE BOTTOM SCREW LINE IN THE WHITE AREA OF THE CAP)
     Route: 048
     Dates: start: 2016

REACTIONS (6)
  - Product use issue [None]
  - Frequent bowel movements [Not Recovered/Not Resolved]
  - Muscle spasms [Not Recovered/Not Resolved]
  - Abdominal pain upper [Not Recovered/Not Resolved]
  - Diarrhoea [Not Recovered/Not Resolved]
  - Nausea [Not Recovered/Not Resolved]
